APPROVED DRUG PRODUCT: SODIUM IODIDE I 131
Active Ingredient: SODIUM IODIDE I-131
Strength: 50mCi/ML
Dosage Form/Route: SOLUTION;ORAL
Application: N017315 | Product #001
Applicant: SUN PHARMACEUTICAL INDUSTRIES INC
Approved: Approved Prior to Jan 1, 1982 | RLD: No | RS: No | Type: DISCN